FAERS Safety Report 7949818-9 (Version None)
Quarter: 2011Q4

REPORT INFORMATION
  Report Type: 
  Country: None (occurrence: None)
  Receive Date: 20111130
  Receipt Date: 20111123
  Transmission Date: 20120403
  Serious: Yes (Other)
  Sender: FDA-Public Use
  Company Number: US-BAYER-2011-114277

PATIENT
  Age: 67 Year
  Sex: Female
  Weight: 86.168 kg

DRUGS (4)
  1. LANTUS [Concomitant]
  2. XANAX [Concomitant]
  3. MAGNESIUM HYDROXIDE TAB [Suspect]
     Dosage: 8 IU, UNK, BOTTLE SIZE 26 OZ
     Route: 048
     Dates: start: 20111122
  4. AVAPRO [Concomitant]

REACTIONS (1)
  - HAEMORRHOIDAL HAEMORRHAGE [None]
